FAERS Safety Report 8002948-8 (Version None)
Quarter: 2011Q4

REPORT INFORMATION
  Report Type: 
  Country: None (occurrence: None)
  Receive Date: 20111222
  Receipt Date: 20110415
  Transmission Date: 20120403
  Serious: No
  Sender: FDA-Public Use
  Company Number: US-GLAXOSMITHKLINE-A0923204A

PATIENT
  Sex: Male

DRUGS (1)
  1. AVODART [Suspect]
     Route: 048
     Dates: start: 20101013

REACTIONS (6)
  - INITIAL INSOMNIA [None]
  - FATIGUE [None]
  - INSOMNIA [None]
  - NOCTURIA [None]
  - SEXUAL DYSFUNCTION [None]
  - MIDDLE INSOMNIA [None]
